FAERS Safety Report 12277489 (Version 1)
Quarter: 2016Q2

REPORT INFORMATION
  Report Type: Spontaneous
  Country: US (occurrence: None)
  Receive Date: 20160415
  Receipt Date: 20160415
  Transmission Date: 20160815
  Serious: No
  Sender: FDA-Public Use
  Company Number: None

PATIENT
  Sex: Female

DRUGS (1)
  1. STELARA [Suspect]
     Active Substance: USTEKINUMAB
     Indication: PSORIASIS
     Dosage: 90 MG EVERY 12 WEEKS SQ
     Route: 058
     Dates: start: 201406, end: 201604

REACTIONS (2)
  - Hepatomegaly [None]
  - Splenomegaly [None]
